FAERS Safety Report 7899936-9 (Version None)
Quarter: 2011Q4

REPORT INFORMATION
  Report Type: 
  Country: None (occurrence: None)
  Receive Date: 20111107
  Receipt Date: 20111011
  Transmission Date: 20120403
  Serious: No
  Sender: FDA-Public Use
  Company Number: US-AMGEN-USASP2011045737

PATIENT
  Age: 61 Year
  Sex: Female

DRUGS (7)
  1. METHOTREXATE [Concomitant]
     Indication: ANKYLOSING SPONDYLITIS
     Dosage: 20 MG, QWK
     Dates: start: 20090812, end: 20110828
  2. METHOTREXATE [Concomitant]
     Indication: POLYARTHRITIS
  3. PRILOSEC [Concomitant]
     Indication: GASTROOESOPHAGEAL REFLUX DISEASE
     Dosage: 20 MG, QD
  4. ENBREL [Suspect]
     Indication: ANKYLOSING SPONDYLITIS
     Dosage: 50 MG, QWK
     Route: 058
     Dates: start: 20110530, end: 20110828
  5. HUMIRA [Concomitant]
     Indication: ANKYLOSING SPONDYLITIS
     Dosage: UNK
     Dates: start: 20100101, end: 20110501
  6. LEVOXYL [Concomitant]
     Indication: HYPOTHYROIDISM
     Dosage: 80 MUG, QD
  7. ALEVE [Concomitant]
     Indication: ARTHRITIS
     Dosage: UNK UNK, PRN

REACTIONS (6)
  - OEDEMA PERIPHERAL [None]
  - DYSPNOEA [None]
  - JOINT SWELLING [None]
  - INJECTION SITE HAEMORRHAGE [None]
  - PNEUMONIA [None]
  - UPPER RESPIRATORY TRACT INFECTION [None]
